FAERS Safety Report 8964435 (Version 1)
Quarter: 2012Q4

REPORT INFORMATION
  Report Type: 
  Country: US (occurrence: US)
  Receive Date: 20121214
  Receipt Date: 20121214
  Transmission Date: 20130627
  Serious: No
  Sender: FDA-Public Use
  Company Number: US-GLAXOSMITHKLINE-A0988951A

PATIENT
  Age: 79 Year
  Sex: Male

DRUGS (11)
  1. AVODART [Suspect]
     Indication: POLLAKIURIA
     Dosage: 1CAP Per day
     Route: 048
  2. VENLAFAXINE [Concomitant]
  3. WELLBUTRIN [Concomitant]
  4. DIOVAN [Concomitant]
  5. GLIMEPIRIDE [Concomitant]
  6. VITAMIN D [Concomitant]
  7. VITAMIN C [Concomitant]
  8. FISH OIL [Concomitant]
  9. COQ-10 [Concomitant]
  10. ASPIRIN [Concomitant]
  11. DOXAZOSIN [Concomitant]

REACTIONS (1)
  - Nocturia [Recovering/Resolving]
